FAERS Safety Report 6671368-0 (Version None)
Quarter: 2010Q2

REPORT INFORMATION
  Report Type: 
  Country: None (occurrence: None)
  Receive Date: 20100407
  Receipt Date: 20100331
  Transmission Date: 20101027
  Serious: Yes (Hospitalization)
  Sender: FDA-Public Use
  Company Number: A0853574A

PATIENT
  Age: 56 Year
  Sex: Female

DRUGS (7)
  1. WELLBUTRIN [Suspect]
     Indication: DRUG USE FOR UNKNOWN INDICATION
     Dosage: 150MG TWICE PER DAY
     Route: 065
     Dates: start: 20100101
  2. EFFEXOR XR [Suspect]
     Indication: FIBROMYALGIA
     Dosage: 37.5MG FOUR TIMES PER DAY
     Route: 048
     Dates: start: 20080101, end: 20100101
  3. OXYCONTIN [Concomitant]
  4. OXYCODONE [Concomitant]
  5. TIZANIDINE HCL [Concomitant]
  6. DIAZEPAM [Concomitant]
  7. NABUMETONE [Concomitant]

REACTIONS (2)
  - DRUG WITHDRAWAL SYNDROME [None]
  - SUICIDE ATTEMPT [None]
